FAERS Safety Report 4265958-2 (Version None)
Quarter: 2004Q1

REPORT INFORMATION
  Report Type: 
  Country: None (occurrence: None)
  Receive Date: 20040106
  Receipt Date: 20031229
  Transmission Date: 20041129
  Serious: Yes (Death)
  Sender: FDA-Public Use
  Company Number: 2003127036

PATIENT
  Age: 14 Year
  Sex: Female

DRUGS (1)
  1. SILDENAFIL (SILDENAFIL) [Suspect]
     Indication: PULMONARY HYPERTENSION
     Dosage: 200 MG (QID), ORAL
     Route: 048
     Dates: start: 20010901, end: 20031201

REACTIONS (1)
  - DEATH [None]
